FAERS Safety Report 21611571 (Version 2)
Quarter: 2022Q4

REPORT INFORMATION
  Report Type: Report from Study
  Country: US (occurrence: US)
  Receive Date: 20221117
  Receipt Date: 20221201
  Transmission Date: 20230113
  Serious: No
  Sender: FDA-Public Use
  Company Number: US-ABBVIE-4180811

PATIENT
  Age: 70 Year
  Sex: Male
  Weight: 99.8 kg

DRUGS (2)
  1. RINVOQ [Suspect]
     Active Substance: UPADACITINIB
     Indication: Dermatitis atopic
     Dosage: FORM STRENGTH: 15 MILLIGRAM
     Route: 048
     Dates: start: 202209
  2. ASPIRIN [Concomitant]
     Active Substance: ASPIRIN
     Indication: Product used for unknown indication

REACTIONS (3)
  - Psoriatic arthropathy [Recovering/Resolving]
  - Grip strength decreased [Recovered/Resolved]
  - Prostatic disorder [Unknown]

NARRATIVE: CASE EVENT DATE: 20221001
